FAERS Safety Report 8624190-X (Version None)
Quarter: 2012Q3

REPORT INFORMATION
  Report Type: 
  Country: None (occurrence: None)
  Receive Date: 20120827
  Receipt Date: 20120518
  Transmission Date: 20120928
  Serious: No
  Sender: FDA-Public Use
  Company Number: US-VERTEX PHARMACEUTICALS INC.-AE-2012-007632

PATIENT
  Age: 8 Year
  Sex: Female

DRUGS (2)
  1. ENZYMES [Concomitant]
  2. KALYDECO [Suspect]
     Indication: CYSTIC FIBROSIS

REACTIONS (2)
  - FAECES DISCOLOURED [None]
  - DIARRHOEA [None]
